FAERS Safety Report 24739405 (Version 1)
Quarter: 2024Q4

REPORT INFORMATION
  Report Type: Spontaneous
  Country: PT (occurrence: PT)
  Receive Date: 20241216
  Receipt Date: 20241216
  Transmission Date: 20250114
  Serious: Yes (Hospitalization)
  Sender: MYLAN
  Company Number: None

PATIENT
  Age: 58 Year
  Sex: Male

DRUGS (13)
  1. TRAMADOL [Suspect]
     Active Substance: TRAMADOL
     Indication: Back pain
     Dosage: 200 MILLIGRAM, BID (200MG TWICE A DAY)
     Route: 048
     Dates: start: 20230120, end: 20230319
  2. ACETAMINOPHEN\THIOCOLCHICOSIDE [Suspect]
     Active Substance: ACETAMINOPHEN\THIOCOLCHICOSIDE
     Indication: Back pain
     Dosage: 2 GRAM, QD (4 TABS PER DAY (DOSE EXPRESSED IN GRAMS OF PARACETAMOL))
     Route: 048
     Dates: start: 20230301, end: 20230319
  3. COVERAM [Concomitant]
     Active Substance: AMLODIPINE\PERINDOPRIL
     Dosage: 10 MILLIGRAM, BID (12 HOURS)
     Route: 048
  4. Rovezix [Concomitant]
     Dosage: 10 MILLIGRAM, BID (12 HOURS)
     Route: 048
  5. CLOPIDOGREL [Concomitant]
     Active Substance: CLOPIDOGREL BISULFATE
     Dosage: 75 MILLIGRAM, QD (24 HOURS)
     Route: 048
  6. ALDACTONE [Concomitant]
     Active Substance: SPIRONOLACTONE
     Dosage: 25 MILLIGRAM, QD (24 HOURS)
     Route: 048
  7. DAPAGLIFLOZIN [Concomitant]
     Active Substance: DAPAGLIFLOZIN
     Dosage: 10 MILLIGRAM, QD (24 HOURS)
     Route: 048
  8. NEBILET HCT [Concomitant]
     Dosage: 30 MILLIGRAM, QD (24 HOURS)
     Route: 048
  9. PREGABALIN [Concomitant]
     Active Substance: PREGABALIN
     Dosage: 150 MILLIGRAM, BID (12 HOURS)
     Route: 048
  10. NITROGLYCERIN [Concomitant]
     Active Substance: NITROGLYCERIN
     Dosage: 10 MILLIGRAM, QD (24 HOURS)
     Route: 062
  11. ZOLPIDEM [Concomitant]
     Active Substance: ZOLPIDEM TARTRATE
     Dosage: 10 MILLIGRAM, QD (24 HOURS)
     Route: 048
  12. FLUOXETINE HYDROCHLORIDE [Concomitant]
     Active Substance: FLUOXETINE HYDROCHLORIDE
     Dosage: 20 MILLIGRAM, QD (24 HOURS)
     Route: 065
  13. ASPIRIN [Concomitant]
     Active Substance: ASPIRIN
     Dosage: 100 MILLIGRAM, QD (24 HOURS)
     Route: 048

REACTIONS (1)
  - Drug-induced liver injury [Recovered/Resolved]

NARRATIVE: CASE EVENT DATE: 20230315
